FAERS Safety Report 14431946 (Version 5)
Quarter: 2019Q2

REPORT INFORMATION
  Report Type: Report from Study
  Country: KR (occurrence: KR)
  Receive Date: 20180124
  Receipt Date: 20190412
  Transmission Date: 20190711
  Serious: Yes (Hospitalization)
  Sender: FDA-Public Use
  Company Number: KR-JNJFOC-20170822177

PATIENT

DRUGS (74)
  1. CYCLOSERINE. [Suspect]
     Active Substance: CYCLOSERINE
     Indication: TUBERCULOSIS
     Route: 048
     Dates: start: 20171021, end: 20180525
  2. PYRIDOXINE [Concomitant]
     Active Substance: PYRIDOXINE
     Indication: POLYNEUROPATHY
     Route: 048
     Dates: start: 20170309, end: 20170817
  3. PYRIDOXINE [Concomitant]
     Active Substance: PYRIDOXINE
     Indication: POLYNEUROPATHY
     Route: 048
     Dates: start: 20170308, end: 20180501
  4. ASPIRIN. [Concomitant]
     Active Substance: ASPIRIN
     Indication: HYPERTENSION
     Route: 048
     Dates: start: 20180428, end: 20180527
  5. TWYNSTA [Concomitant]
     Active Substance: AMLODIPINE BESYLATE\TELMISARTAN
     Indication: HYPERTENSION
     Route: 048
     Dates: start: 20170406, end: 20170821
  6. TRAMADOL. [Concomitant]
     Active Substance: TRAMADOL
     Indication: ABDOMINAL SYMPTOM
     Route: 042
     Dates: start: 20170309, end: 20170329
  7. TRAMADOL. [Concomitant]
     Active Substance: TRAMADOL
     Indication: ABDOMINAL SYMPTOM
     Route: 042
     Dates: start: 20170822, end: 20170905
  8. PETHIDINE [Concomitant]
     Active Substance: MEPERIDINE
     Indication: ABDOMINAL SYMPTOM
     Route: 042
     Dates: start: 20170313, end: 20170314
  9. SODIUM [Concomitant]
     Active Substance: SODIUM
     Indication: FLUID REPLACEMENT
     Route: 065
     Dates: start: 20170702, end: 20170716
  10. KANAMYCIN [Suspect]
     Active Substance: KANAMYCIN\KANAMYCIN A SULFATE
     Indication: TUBERCULOSIS
     Dosage: (REGIMEN 2)
     Route: 030
     Dates: start: 20170714, end: 20170817
  11. METOCLOPRAMIDE HCL [Concomitant]
     Active Substance: METOCLOPRAMIDE HYDROCHLORIDE
     Indication: NAUSEA
     Route: 042
     Dates: start: 20170310, end: 20170330
  12. TRAMADOL. [Concomitant]
     Active Substance: TRAMADOL
     Indication: UNEVALUABLE EVENT
     Route: 042
     Dates: start: 20170309, end: 20170329
  13. KANAMYCIN [Suspect]
     Active Substance: KANAMYCIN\KANAMYCIN A SULFATE
     Indication: TUBERCULOSIS
     Route: 030
     Dates: start: 20170921, end: 20171229
  14. ASPIRIN. [Concomitant]
     Active Substance: ASPIRIN
     Indication: HYPERTENSION
     Route: 048
     Dates: start: 20170321, end: 20170829
  15. ASPIRIN. [Concomitant]
     Active Substance: ASPIRIN
     Indication: PROCEDURAL PAIN
     Route: 048
     Dates: start: 20170321, end: 20170829
  16. MUCOSTA [Concomitant]
     Active Substance: REBAMIPIDE
     Indication: GASTROINTESTINAL DISORDER
     Route: 048
     Dates: start: 20170321, end: 20170821
  17. TRAMADOL. [Concomitant]
     Active Substance: TRAMADOL
     Indication: PAIN IN EXTREMITY
     Route: 042
     Dates: start: 20170309, end: 20170329
  18. TRAMADOL. [Concomitant]
     Active Substance: TRAMADOL
     Indication: UNEVALUABLE EVENT
     Route: 042
     Dates: start: 20170714, end: 20170714
  19. TRAMADOL. [Concomitant]
     Active Substance: TRAMADOL
     Indication: PAIN IN EXTREMITY
     Route: 042
     Dates: start: 20170716, end: 20170716
  20. CYCLOSERINE. [Suspect]
     Active Substance: CYCLOSERINE
     Indication: TUBERCULOSIS
     Dosage: (REGIMEN 1)
     Route: 048
     Dates: start: 20170310, end: 20170327
  21. HARNAL [Concomitant]
     Active Substance: TAMSULOSIN HYDROCHLORIDE
     Indication: POLLAKIURIA
     Route: 048
     Dates: start: 20170331, end: 20170817
  22. TWYNSTA [Concomitant]
     Active Substance: AMLODIPINE BESYLATE\TELMISARTAN
     Indication: HYPERTENSION
     Route: 048
     Dates: start: 20151107, end: 20180501
  23. METOCLOPRAMIDE HCL [Concomitant]
     Active Substance: METOCLOPRAMIDE HYDROCHLORIDE
     Indication: NAUSEA
     Route: 042
     Dates: start: 20170506, end: 20170513
  24. TRAMADOL. [Concomitant]
     Active Substance: TRAMADOL
     Indication: ABDOMINAL SYMPTOM
     Route: 042
     Dates: start: 20170716, end: 20170716
  25. TRAMADOL. [Concomitant]
     Active Substance: TRAMADOL
     Indication: PAIN IN EXTREMITY
     Route: 042
     Dates: start: 20170816, end: 20170816
  26. PETHIDINE [Concomitant]
     Active Substance: MEPERIDINE
     Indication: ABDOMINAL SYMPTOM
     Route: 042
     Dates: start: 20170507, end: 20170508
  27. PETHIDINE [Concomitant]
     Active Substance: MEPERIDINE
     Indication: ABDOMINAL SYMPTOM
     Route: 042
     Dates: start: 20170821, end: 20170906
  28. FEXOFEN [Concomitant]
     Indication: PRURITUS
     Route: 048
     Dates: start: 20170825, end: 20170829
  29. DEXILANT [Concomitant]
     Active Substance: DEXLANSOPRAZOLE
     Indication: GASTROINTESTINAL DISORDER
     Route: 048
     Dates: start: 20170406, end: 20170821
  30. PYRAZINAMIDE. [Suspect]
     Active Substance: PYRAZINAMIDE
     Indication: TUBERCULOSIS
     Dosage: 7 DAYS??((REGIMEN 2)
     Route: 048
     Dates: start: 20170714, end: 20170719
  31. LINEZOLID. [Suspect]
     Active Substance: LINEZOLID
     Indication: TUBERCULOSIS
     Dosage: (REGIMEN 2)
     Route: 048
     Dates: start: 20170714, end: 20170817
  32. LIVALO [Concomitant]
     Active Substance: PITAVASTATIN CALCIUM
     Indication: HYPERTENSION
     Route: 048
     Dates: start: 20170406, end: 20170821
  33. METOCLOPRAMIDE HCL [Concomitant]
     Active Substance: METOCLOPRAMIDE HYDROCHLORIDE
     Indication: GASTROINTESTINAL DISORDER
     Route: 042
     Dates: start: 20170310, end: 20170330
  34. TRAMADOL. [Concomitant]
     Active Substance: TRAMADOL
     Indication: PAIN
     Route: 042
     Dates: start: 20170309, end: 20170329
  35. TRAMADOL. [Concomitant]
     Active Substance: TRAMADOL
     Indication: PAIN IN EXTREMITY
     Route: 042
     Dates: start: 20170701, end: 20170713
  36. TRAMADOL. [Concomitant]
     Active Substance: TRAMADOL
     Indication: PAIN
     Route: 042
     Dates: start: 20170714, end: 20170714
  37. TRAMADOL. [Concomitant]
     Active Substance: TRAMADOL
     Indication: PAIN
     Route: 042
     Dates: start: 20170822, end: 20170905
  38. TRAMADOL. [Concomitant]
     Active Substance: TRAMADOL
     Indication: UNEVALUABLE EVENT
     Route: 042
     Dates: start: 20170822, end: 20170905
  39. TRAMADOL. [Concomitant]
     Active Substance: TRAMADOL
     Indication: PAIN IN EXTREMITY
     Route: 042
     Dates: start: 20170822, end: 20170905
  40. SODIUM [Concomitant]
     Active Substance: SODIUM
     Indication: FLUID REPLACEMENT
     Route: 065
     Dates: start: 20170821
  41. KANAMYCIN [Suspect]
     Active Substance: KANAMYCIN\KANAMYCIN A SULFATE
     Indication: TUBERCULOSIS
     Dosage: (REGIMEN 1)
     Route: 030
     Dates: start: 20170515, end: 20170630
  42. CYCLOSERINE. [Suspect]
     Active Substance: CYCLOSERINE
     Indication: TUBERCULOSIS
     Dosage: (REGIMEN 2)
     Route: 048
     Dates: start: 20170714, end: 20170817
  43. COLCHICINE. [Concomitant]
     Active Substance: COLCHICINE
     Indication: GOUT
     Route: 048
     Dates: start: 20170720, end: 20170829
  44. COLCHICINE. [Concomitant]
     Active Substance: COLCHICINE
     Indication: GOUT
     Route: 048
     Dates: start: 20170926, end: 20171226
  45. TWYNSTA [Concomitant]
     Active Substance: AMLODIPINE BESYLATE\TELMISARTAN
     Indication: HYPERTENSION
     Route: 048
     Dates: start: 20180517, end: 20180524
  46. METOCLOPRAMIDE HCL [Concomitant]
     Active Substance: METOCLOPRAMIDE HYDROCHLORIDE
     Indication: NAUSEA
     Route: 042
     Dates: start: 20170816, end: 20170816
  47. METOCLOPRAMIDE HCL [Concomitant]
     Active Substance: METOCLOPRAMIDE HYDROCHLORIDE
     Indication: NAUSEA
     Route: 042
     Dates: start: 20170824, end: 20170905
  48. TRAMADOL. [Concomitant]
     Active Substance: TRAMADOL
     Indication: ABDOMINAL SYMPTOM
     Route: 042
     Dates: start: 20170714, end: 20170714
  49. TRAMADOL. [Concomitant]
     Active Substance: TRAMADOL
     Indication: PAIN
     Route: 042
     Dates: start: 20170716, end: 20170716
  50. TRAMADOL. [Concomitant]
     Active Substance: TRAMADOL
     Indication: UNEVALUABLE EVENT
     Route: 042
     Dates: start: 20170716, end: 20170716
  51. TRAMADOL. [Concomitant]
     Active Substance: TRAMADOL
     Indication: ABDOMINAL SYMPTOM
     Route: 042
     Dates: start: 20170816, end: 20170816
  52. PYRAZINAMIDE. [Suspect]
     Active Substance: PYRAZINAMIDE
     Indication: TUBERCULOSIS
     Dosage: (REGIMEN 1)
     Route: 048
     Dates: start: 20170309, end: 20170509
  53. PYRAZINAMIDE. [Suspect]
     Active Substance: PYRAZINAMIDE
     Indication: TUBERCULOSIS
     Dosage: (REGIMEN 1)
     Route: 048
     Dates: start: 20170517, end: 20170714
  54. LINEZOLID. [Suspect]
     Active Substance: LINEZOLID
     Indication: TUBERCULOSIS
     Route: 048
     Dates: start: 20180401, end: 20180521
  55. GASMOTIN [Concomitant]
     Active Substance: MOSAPRIDE CITRATE
     Indication: GASTROINTESTINAL DISORDER
     Route: 048
     Dates: start: 20170309, end: 20170817
  56. TRAMADOL. [Concomitant]
     Active Substance: TRAMADOL
     Indication: UNEVALUABLE EVENT
     Route: 042
     Dates: start: 20170816, end: 20170816
  57. PETHIDINE [Concomitant]
     Active Substance: MEPERIDINE
     Indication: ABDOMINAL SYMPTOM
     Route: 042
     Dates: start: 20170816, end: 20170816
  58. FEXOFEN [Concomitant]
     Indication: PRURITUS
     Route: 048
     Dates: start: 20170524, end: 20170817
  59. BEDAQUILINE [Suspect]
     Active Substance: BEDAQUILINE
     Indication: TUBERCULOSIS
     Dosage: (REGIMEN 2)
     Route: 048
     Dates: start: 20170729, end: 20170817
  60. CYCLOSERINE. [Suspect]
     Active Substance: CYCLOSERINE
     Indication: TUBERCULOSIS
     Dosage: (REGIMEN 1)
     Route: 048
     Dates: start: 20170601, end: 20170714
  61. LINEZOLID. [Suspect]
     Active Substance: LINEZOLID
     Indication: TUBERCULOSIS
     Route: 048
     Dates: start: 20170921, end: 20180314
  62. PYRIDOXINE [Concomitant]
     Active Substance: PYRIDOXINE
     Indication: POLYNEUROPATHY
     Route: 048
     Dates: start: 20180503, end: 20180527
  63. ASPIRIN. [Concomitant]
     Active Substance: ASPIRIN
     Indication: PROCEDURAL PAIN
     Route: 048
     Dates: start: 20180428, end: 20180527
  64. METOCLOPRAMIDE HCL [Concomitant]
     Active Substance: METOCLOPRAMIDE HYDROCHLORIDE
     Indication: GASTROINTESTINAL DISORDER
     Route: 042
     Dates: start: 20170506, end: 20170513
  65. METOCLOPRAMIDE HCL [Concomitant]
     Active Substance: METOCLOPRAMIDE HYDROCHLORIDE
     Indication: GASTROINTESTINAL DISORDER
     Route: 042
     Dates: start: 20170816, end: 20170816
  66. METOCLOPRAMIDE HCL [Concomitant]
     Active Substance: METOCLOPRAMIDE HYDROCHLORIDE
     Indication: GASTROINTESTINAL DISORDER
     Route: 042
     Dates: start: 20170824, end: 20170905
  67. TRAMADOL. [Concomitant]
     Active Substance: TRAMADOL
     Indication: PAIN
     Route: 042
     Dates: start: 20170701, end: 20170713
  68. TRAMADOL. [Concomitant]
     Active Substance: TRAMADOL
     Indication: ABDOMINAL SYMPTOM
     Route: 042
     Dates: start: 20170701, end: 20170713
  69. TRAMADOL. [Concomitant]
     Active Substance: TRAMADOL
     Indication: UNEVALUABLE EVENT
     Route: 042
     Dates: start: 20170701, end: 20170713
  70. TRAMADOL. [Concomitant]
     Active Substance: TRAMADOL
     Indication: PAIN IN EXTREMITY
     Route: 042
     Dates: start: 20170714, end: 20170714
  71. TRAMADOL. [Concomitant]
     Active Substance: TRAMADOL
     Indication: PAIN
     Route: 042
     Dates: start: 20170816, end: 20170816
  72. BEDAQUILINE [Suspect]
     Active Substance: BEDAQUILINE
     Indication: TUBERCULOSIS
     Dosage: 2 WEEKS (REGIMEN 2)
     Route: 048
     Dates: start: 20170714, end: 20170727
  73. BEDAQUILINE [Suspect]
     Active Substance: BEDAQUILINE
     Indication: TUBERCULOSIS
     Route: 048
     Dates: start: 20170921, end: 20180131
  74. KANAMYCIN [Suspect]
     Active Substance: KANAMYCIN\KANAMYCIN A SULFATE
     Indication: TUBERCULOSIS
     Dosage: (REGIMEN 1)
     Route: 030
     Dates: start: 20170309, end: 20170509

REACTIONS (5)
  - Urinary tract infection [Recovered/Resolved]
  - Nausea [Recovered/Resolved]
  - Enterocolitis [Recovered/Resolved]
  - Gout [Recovered/Resolved]
  - Pruritus [Recovered/Resolved]

NARRATIVE: CASE EVENT DATE: 20170720
